FAERS Safety Report 6545848-2 (Version None)
Quarter: 2010Q1

REPORT INFORMATION
  Report Type: 
  Country: None (occurrence: None)
  Receive Date: 20100121
  Receipt Date: 20100113
  Transmission Date: 20100710
  Serious: Yes (Hospitalization, Other)
  Sender: FDA-Public Use
  Company Number: PHHY2009JP22379

PATIENT
  Age: 60 Year
  Sex: Male

DRUGS (8)
  1. NEORAL [Suspect]
     Indication: MYELODYSPLASTIC SYNDROME
     Dosage: 200 MG/DAY
     Route: 048
     Dates: start: 20090401, end: 20090501
  2. NEORAL [Suspect]
     Dosage: UNK
     Route: 048
  3. BASEN [Suspect]
     Indication: DIABETES MELLITUS
     Dosage: 0.6 MG/DAY
     Dates: end: 20090501
  4. PRIMOBOLAN [Suspect]
     Indication: MYELODYSPLASTIC SYNDROME
     Dosage: 20 MG/DAY
     Dates: start: 20090401
  5. PREDNISOLONE [Suspect]
     Indication: MYELODYSPLASTIC SYNDROME
     Dosage: 15 MG, UNK
     Dates: start: 20090401, end: 20090501
  6. SLOW-K [Concomitant]
     Dosage: 3600 MG
     Route: 048
  7. ITRIZOLE [Concomitant]
  8. GLIMEPIRIDE [Concomitant]
     Indication: DIABETES MELLITUS
     Dosage: 2 MG, UNK

REACTIONS (3)
  - ASPERGILLOSIS [None]
  - CYTOMEGALOVIRUS INFECTION [None]
  - PNEUMATOSIS INTESTINALIS [None]
